FAERS Safety Report 18219536 (Version 5)
Quarter: 2021Q3

REPORT INFORMATION
  Report Type: Report from Study
  Country: CO (occurrence: CO)
  Receive Date: 20200901
  Receipt Date: 20210903
  Transmission Date: 20211014
  Serious: Yes (Hospitalization, Other)
  Sender: FDA-Public Use
  Company Number: CO-SEATTLE GENETICS-2020SGN03894

PATIENT
  Age: 23 Year
  Sex: Female
  Weight: 74 kg

DRUGS (1)
  1. BRENTUXIMAB VEDOTIN [Suspect]
     Active Substance: BRENTUXIMAB VEDOTIN
     Indication: ANAPLASTIC LARGE CELL LYMPHOMA T- AND NULL-CELL TYPES
     Dosage: 100 MILLIGRAM, Q3WEEKS
     Route: 042
     Dates: start: 20200106

REACTIONS (6)
  - Pneumonia [Recovered/Resolved]
  - Weight increased [Not Recovered/Not Resolved]
  - Exfoliative rash [Not Recovered/Not Resolved]
  - Incorrect dose administered [Unknown]
  - Hodgkin^s disease [Not Recovered/Not Resolved]
  - Limb mass [Unknown]

NARRATIVE: CASE EVENT DATE: 202001
